FAERS Safety Report 8382014-2 (Version None)
Quarter: 2012Q2

REPORT INFORMATION
  Report Type: 
  Country: None (occurrence: None)
  Receive Date: 20120522
  Receipt Date: 20120511
  Transmission Date: 20120825
  Serious: Yes (Disabling)
  Sender: FDA-Public Use
  Company Number: 2012AP001431

PATIENT
  Age: 70 Year
  Sex: Female

DRUGS (1)
  1. RAMIPRIL [Suspect]
     Indication: HYPERTENSION
     Dosage: 5 MG;QD, PO
     Route: 048
     Dates: start: 20110801, end: 20110101

REACTIONS (4)
  - PEMPHIGOID [None]
  - DERMATITIS [None]
  - CELLULITIS [None]
  - DERMATITIS ALLERGIC [None]
